FAERS Safety Report 4363593-9 (Version None)
Quarter: 2004Q2

REPORT INFORMATION
  Report Type: 
  Country: None (occurrence: None)
  Receive Date: 20040524
  Receipt Date: 20040524
  Transmission Date: 20050107
  Serious: Yes (Other)
  Sender: FDA-Public Use
  Company Number: None

PATIENT
  Age: 57 Year
  Sex: Male
  Weight: 71.2147 kg

DRUGS (1)
  1. SERZONE [Suspect]
     Indication: BEREAVEMENT REACTION
     Dosage: 1 DAILY

REACTIONS (1)
  - SUICIDAL IDEATION [None]
